FAERS Safety Report 4615352-7 (Version None)
Quarter: 2005Q1

REPORT INFORMATION
  Report Type: 
  Country: None (occurrence: None)
  Receive Date: 20050317
  Receipt Date: 20050308
  Transmission Date: 20050727
  Serious: No
  Sender: FDA-Public Use
  Company Number: 2005AC00428

PATIENT
  Age: 68 Year
  Sex: Male

DRUGS (2)
  1. ZESTRIL [Suspect]
     Indication: HYPERTENSION
     Dosage: 2.5 MG DAILY PO
     Route: 048
     Dates: start: 20020301
  2. LIPITOR [Suspect]

REACTIONS (1)
  - MYOPATHY [None]
